FAERS Safety Report 6457507-5 (Version None)
Quarter: 2009Q4

REPORT INFORMATION
  Report Type: 
  Country: None (occurrence: None)
  Receive Date: 20091125
  Receipt Date: 20091118
  Transmission Date: 20100525
  Serious: Yes (Death, Hospitalization)
  Sender: FDA-Public Use
  Company Number: JO-PFIZER INC-2009295387

PATIENT
  Age: 80 Year
  Sex: Female

DRUGS (10)
  1. SILDENAFIL CITRATE [Suspect]
     Indication: PULMONARY HYPERTENSION
     Dosage: 25 MG, 1X/DAY
     Route: 048
  2. SILDENAFIL CITRATE [Suspect]
     Dosage: 50 MG, 2X/DAY
     Route: 048
     Dates: start: 20091023
  3. TIENAM [Concomitant]
     Indication: INFECTION
     Dosage: UNK
  4. TAVANIC [Concomitant]
     Dosage: UNK
  5. DIGOXIN [Concomitant]
     Dosage: 0.25 MG, UNK
  6. INSULIN [Concomitant]
  7. LEVOTHYROXINE SODIUM [Concomitant]
     Indication: HYPERTHYROIDISM
     Dosage: 100 MG, UNK
  8. ALDACTONE [Concomitant]
     Indication: HYPERTENSION
  9. INVANZ [Concomitant]
     Indication: LOWER RESPIRATORY TRACT INFECTION
     Dosage: UNK
  10. MEROPENEM [Concomitant]
     Indication: LOWER RESPIRATORY TRACT INFECTION
     Dosage: 500 G, 2X/DAY

REACTIONS (3)
  - DEATH [None]
  - OEDEMA PERIPHERAL [None]
  - PULMONARY OEDEMA [None]
